FAERS Safety Report 4577595-0 (Version None)
Quarter: 2005Q1

REPORT INFORMATION
  Report Type: 
  Country: None (occurrence: None)
  Receive Date: 20050208
  Receipt Date: 20050131
  Transmission Date: 20050727
  Serious: Yes (Hospitalization)
  Sender: FDA-Public Use
  Company Number: 2004IM000924

PATIENT
  Age: 50 Year
  Sex: Female

DRUGS (6)
  1. INFERGEN [Suspect]
     Indication: HEPATITIS C
     Dosage: 9 UG; TIW; SUBCUTANEOUS
     Route: 058
     Dates: start: 20040507, end: 20040830
  2. CETIRIZINE HCL [Concomitant]
  3. CALCIUM CARBONATE [Concomitant]
  4. SEVELAMER HYDROCHLORIDE [Concomitant]
  5. SODIUM POLYSTYRENE SULFONATE [Concomitant]
  6. EPOETIN ALFA [Concomitant]

REACTIONS (4)
  - DIASTOLIC HYPERTENSION [None]
  - HEADACHE [None]
  - STATUS EPILEPTICUS [None]
  - VOMITING [None]
